FAERS Safety Report 20989774 (Version 3)
Quarter: 2024Q4

REPORT INFORMATION
  Report Type: Spontaneous
  Country: US (occurrence: US)
  Receive Date: 20220621
  Receipt Date: 20241025
  Transmission Date: 20250115
  Serious: Yes (Other)
  Sender: PURDUE
  Company Number: US-PURDUE-USA-2021-0288901

PATIENT
  Sex: Male
  Weight: 70.295 kg

DRUGS (5)
  1. OXYCONTIN [Suspect]
     Active Substance: OXYCODONE HYDROCHLORIDE
     Indication: Pain
     Dosage: UNKNOWN
     Route: 048
  2. OXYCODONE HYDROCHLORIDE [Suspect]
     Active Substance: OXYCODONE HYDROCHLORIDE
     Indication: Pain
     Dosage: 120 MG, DAILY
     Route: 065
  3. OXYCODONE HYDROCHLORIDE [Suspect]
     Active Substance: OXYCODONE HYDROCHLORIDE
     Indication: Pain management
     Dosage: 7 TABLET, DAILY (7X PER DAY)
     Route: 048
     Dates: start: 2010
  4. OXYCODONE HYDROCHLORIDE [Suspect]
     Active Substance: OXYCODONE HYDROCHLORIDE
     Indication: Back pain
  5. OXYCODONE HYDROCHLORIDE [Suspect]
     Active Substance: OXYCODONE HYDROCHLORIDE
     Indication: Pain

REACTIONS (16)
  - Suicidal ideation [Unknown]
  - Drug dependence [Unknown]
  - Emotional distress [Unknown]
  - Impaired quality of life [Unknown]
  - General physical health deterioration [Unknown]
  - Formication [Unknown]
  - Dyschezia [Unknown]
  - Pain [Not Recovered/Not Resolved]
  - Injury [Unknown]
  - Depression [Unknown]
  - Insomnia [Unknown]
  - Hyperhidrosis [Unknown]
  - Somnolence [Unknown]
  - Hypoaesthesia [Unknown]
  - Drug withdrawal syndrome [Unknown]
  - Paraesthesia [Unknown]

NARRATIVE: CASE EVENT DATE: 20130101
